FAERS Safety Report 15369613 (Version 2)
Quarter: 2018Q3

REPORT INFORMATION
  Report Type: Spontaneous
  Country: US (occurrence: US)
  Receive Date: 20180911
  Receipt Date: 20180913
  Transmission Date: 20181010
  Serious: No
  Sender: FDA-Public Use
  Company Number: US-PFIZER INC-2018361818

PATIENT
  Age: 65 Year
  Sex: Female
  Weight: 81.63 kg

DRUGS (2)
  1. XELJANZ XR [Suspect]
     Active Substance: TOFACITINIB CITRATE
     Indication: RHEUMATOID ARTHRITIS
     Dosage: 11 MG, UNK
  2. XELJANZ XR [Suspect]
     Active Substance: TOFACITINIB CITRATE
     Dosage: 11 MG, 1X/DAY
     Route: 048
     Dates: start: 201803

REACTIONS (7)
  - Tearfulness [Unknown]
  - Nasopharyngitis [Recovered/Resolved]
  - Urinary tract infection [Recovered/Resolved]
  - Emotional disorder [Recovered/Resolved]
  - Hot flush [Recovered/Resolved]
  - Gastrointestinal disorder [Recovered/Resolved]
  - Crying [Recovered/Resolved]
